FAERS Safety Report 24791924 (Version 1)
Quarter: 2024Q4

REPORT INFORMATION
  Report Type: Report from Study
  Country: US (occurrence: US)
  Receive Date: 20241231
  Receipt Date: 20241231
  Transmission Date: 20250114
  Serious: Yes (Hospitalization)
  Sender: JOHNSON AND JOHNSON
  Company Number: US-JNJFOC-20241264529

PATIENT
  Age: 36 Year
  Sex: Male
  Weight: 70.76 kg

DRUGS (4)
  1. EPOPROSTENOL SODIUM [Suspect]
     Active Substance: EPOPROSTENOL SODIUM
     Indication: Pulmonary arterial hypertension
     Route: 042
  2. OPSUMIT [Concomitant]
     Active Substance: MACITENTAN
  3. ADEMPAS [Concomitant]
     Active Substance: RIOCIGUAT
  4. WINREVAIR [Concomitant]
     Active Substance: SOTATERCEPT-CSRK

REACTIONS (5)
  - Device occlusion [Unknown]
  - Drug delivery system malfunction [Not Recovered/Not Resolved]
  - Dyspnoea [Unknown]
  - Underdose [Unknown]
  - Product administration interrupted [Unknown]

NARRATIVE: CASE EVENT DATE: 20241216
